FAERS Safety Report 9690821 (Version 1)
Quarter: 2013Q4

REPORT INFORMATION
  Report Type: Spontaneous
  Country: US (occurrence: None)
  Receive Date: 20131114
  Receipt Date: 20131114
  Transmission Date: 20140711
  Serious: No
  Sender: FDA-Public Use
  Company Number: None

PATIENT
  Sex: 0

DRUGS (1)
  1. TRAMADOL [Suspect]
     Dates: start: 20131105

REACTIONS (4)
  - Hallucination [None]
  - Dizziness [None]
  - Hyperhidrosis [None]
  - Blood pressure increased [None]
